FAERS Safety Report 12499857 (Version 1)
Quarter: 2016Q2

REPORT INFORMATION
  Report Type: Spontaneous
  Country: US (occurrence: US)
  Receive Date: 20160627
  Receipt Date: 20160627
  Transmission Date: 20160815
  Serious: Yes (Death, Other)
  Sender: FDA-Public Use
  Company Number: US-MALLINCKRODT-T201602686

PATIENT
  Age: 24 Year
  Sex: Female

DRUGS (1)
  1. INOMAX [Suspect]
     Active Substance: NITRIC OXIDE
     Indication: PRODUCT USED FOR UNKNOWN INDICATION
     Dosage: 20 PPM, CONTINUOUSLY
     Dates: start: 20160529

REACTIONS (5)
  - Oxygen saturation decreased [Recovering/Resolving]
  - Off label use [Not Recovered/Not Resolved]
  - Therapy cessation [Recovered/Resolved]
  - Device issue [Unknown]
  - Death [Fatal]

NARRATIVE: CASE EVENT DATE: 20160529
